FAERS Safety Report 7457544-8 (Version None)
Quarter: 2011Q2

REPORT INFORMATION
  Report Type: 
  Country: None (occurrence: None)
  Receive Date: 20110504
  Receipt Date: 20110429
  Transmission Date: 20111010
  Serious: Yes (Hospitalization)
  Sender: FDA-Public Use
  Company Number: US-SANOFI-AVENTIS-2011SA015217

PATIENT
  Age: 72 Year
  Sex: Male
  Weight: 80.91 kg

DRUGS (10)
  1. PLAVIX [Suspect]
     Route: 048
     Dates: start: 20110311
  2. ASPIRIN [Suspect]
     Route: 048
     Dates: end: 20110201
  3. OMEPRAZOLE [Concomitant]
  4. XANAX [Concomitant]
     Dosage: Q6H PRN
     Route: 048
  5. NITROGLYCERIN [Concomitant]
  6. COREG [Concomitant]
  7. ZOCOR [Concomitant]
  8. PLAVIX [Suspect]
     Route: 048
     Dates: start: 20090101, end: 20110226
  9. ROBAXIN [Concomitant]
  10. LISINOPRIL [Concomitant]

REACTIONS (2)
  - EAR DISCOMFORT [None]
  - DUODENAL ULCER HAEMORRHAGE [None]
